FAERS Safety Report 11793825 (Version 1)
Quarter: 2015Q4

REPORT INFORMATION
  Report Type: Spontaneous
  Country: US (occurrence: None)
  Receive Date: 20151201
  Receipt Date: 20151201
  Transmission Date: 20160305
  Serious: Yes (Other)
  Sender: FDA-Public Use
  Company Number: None

PATIENT
  Age: 80 Year
  Sex: Female
  Weight: 79.38 kg

DRUGS (11)
  1. VITAMIN B COMPLEX [Concomitant]
     Active Substance: CYANOCOBALAMIN\DEXPANTHENOL\NIACINAMIDE\PYRIDOXINE HYDROCHLORIDE\RIBOFLAVIN 5^-PHOSPHATE SODIUM\THIAMINE HYDROCHLORIDE\VITAMIN B COMPLEX
  2. GLUCOSAMINE/CHONDROITIN [Concomitant]
  3. TRAMADOL HYDROCHLORIDE/ACETAMINOPHEN 37.5-325 TAB MYLA [Suspect]
     Active Substance: ACETAMINOPHEN\TRAMADOL HYDROCHLORIDE
     Indication: MUSCLE STRAIN
     Dosage: 1 TABLET EVERY 6 -8 HOURS BY MOUTH
     Route: 048
     Dates: start: 20140523, end: 20140525
  4. LOSARTAN K [Concomitant]
  5. SENIOR MULTIVITAMIN [Concomitant]
  6. TRAMADOL HYDROCHLORIDE/ACETAMINOPHEN 37.5-325 TAB MYLA [Suspect]
     Active Substance: ACETAMINOPHEN\TRAMADOL HYDROCHLORIDE
     Indication: ARTHRITIS
     Dosage: 1 TABLET EVERY 6 -8 HOURS BY MOUTH
     Route: 048
     Dates: start: 20140523, end: 20140525
  7. LEVOTHYROXINE. [Concomitant]
     Active Substance: LEVOTHYROXINE
  8. VIT. D [Concomitant]
  9. FLAXSEED [Concomitant]
     Active Substance: FLAX SEED
  10. PACEMAKER [Concomitant]
  11. VITAMIN D [Concomitant]
     Active Substance: CHOLECALCIFEROL

REACTIONS (3)
  - Chromaturia [None]
  - Dry mouth [None]
  - Acute kidney injury [None]

NARRATIVE: CASE EVENT DATE: 20140524
